FAERS Safety Report 6382702-3 (Version None)
Quarter: 2009Q3

REPORT INFORMATION
  Report Type: 
  Country: None (occurrence: None)
  Receive Date: 20090930
  Receipt Date: 20090729
  Transmission Date: 20100115
  Serious: Yes (Hospitalization)
  Sender: FDA-Public Use
  Company Number: ADE# 09-123

PATIENT
  Age: 46 Year
  Sex: Male
  Weight: 61.2356 kg

DRUGS (45)
  1. PHENYTOIN SODIUM [Suspect]
     Indication: CONVULSION
     Dosage: 100MG @ AM; 200MG @ BED
     Dates: start: 20090601, end: 20090701
  2. REQUIP [Concomitant]
  3. DILANTIN [Concomitant]
  4. REMERON [Concomitant]
  5. INDERAL [Concomitant]
  6. MYSOLINE [Concomitant]
  7. DILANTIN [Concomitant]
  8. CLARINEX [Concomitant]
  9. SEROQUEL [Concomitant]
  10. OYSTER SHELL CALC VIT D TB MJ [Concomitant]
  11. NASONEX [Concomitant]
  12. SEROQUEL [Concomitant]
  13. FISH OIL [Concomitant]
  14. SEROQUEL [Concomitant]
  15. NEURONTIN [Concomitant]
  16. MYSOLINE [Concomitant]
  17. FISH OIL [Concomitant]
  18. OYXTER SHELL CALC VIT D TB MJ [Concomitant]
  19. CLARINEX [Concomitant]
  20. NASONEX [Concomitant]
  21. INDERAL [Concomitant]
  22. SEROQUEL [Concomitant]
  23. REQUIP [Concomitant]
  24. MYSOLINE [Concomitant]
  25. DILANTIN [Concomitant]
  26. REMERON [Concomitant]
  27. DEBROX 6.5% EAR DROPS [Concomitant]
  28. DEPAKOTE [Concomitant]
  29. TRIAMCINOLONE .1% CR [Concomitant]
  30. FLONASE .05% SPRAY [Concomitant]
  31. CLARINEX [Concomitant]
  32. INDERAL [Concomitant]
  33. REQUIP [Concomitant]
  34. MYSOLINE [Concomitant]
  35. REMERON [Concomitant]
  36. DILANTIN [Concomitant]
  37. FLONASE .05% SPRAY [Concomitant]
  38. CLARINEX [Concomitant]
  39. SEROQUEL [Concomitant]
  40. DEPAKOTE [Concomitant]
  41. REQUIP [Concomitant]
  42. INDERAL [Concomitant]
  43. DEPAKOTE [Concomitant]
  44. CLARITIN [Concomitant]
  45. DEPAKOTE ER [Concomitant]

REACTIONS (2)
  - DRUG TOXICITY [None]
  - PRODUCT SUBSTITUTION ISSUE [None]
